FAERS Safety Report 8232663-7 (Version None)
Quarter: 2012Q1

REPORT INFORMATION
  Report Type: 
  Country: None (occurrence: None)
  Receive Date: 20120323
  Receipt Date: 20120320
  Transmission Date: 20120608
  Serious: Yes (Other)
  Sender: FDA-Public Use
  Company Number: US-PFIZER INC-2012073540

PATIENT
  Sex: Female
  Weight: 71.655 kg

DRUGS (3)
  1. LIPITOR [Suspect]
     Indication: BLOOD CHOLESTEROL INCREASED
     Dosage: 20 MG, 1X/DAY
     Dates: start: 20111201
  2. LAMICTAL [Concomitant]
     Dosage: 200 MG, 1X/DAY
  3. CITALOPRAM HYDROBROMIDE [Concomitant]
     Dosage: 20 MG, 1X/DAY

REACTIONS (3)
  - FALL [None]
  - BALANCE DISORDER [None]
  - DIZZINESS [None]
